FAERS Safety Report 17650380 (Version 1)
Quarter: 2020Q2

REPORT INFORMATION
  Report Type: Spontaneous
  Country: JP (occurrence: BR)
  Receive Date: 20200409
  Receipt Date: 20200409
  Transmission Date: 20200713
  Serious: Yes (Other)
  Sender: FDA-Public Use
  Company Number: BR-ELI_LILLY_AND_COMPANY-BR202004002631

PATIENT
  Age: 63 Year
  Sex: Male

DRUGS (3)
  1. BENICAR ANLO [Suspect]
     Active Substance: AMLODIPINE BESYLATE\OLMESARTAN MEDOXOMIL
     Indication: HYPERTENSION
     Dosage: 1 DOSAGE FORM, DAILY (40/5 MG)
     Route: 048
     Dates: start: 2019, end: 202003
  2. BENICAR [Suspect]
     Active Substance: OLMESARTAN MEDOXOMIL
     Indication: HYPERTENSION
     Dosage: 40 MG, DAILY
     Route: 048
     Dates: start: 202003
  3. EFFIENT [Suspect]
     Active Substance: PRASUGREL HYDROCHLORIDE
     Indication: CATHETERISATION CARDIAC
     Dosage: 10 MG, UNK
     Route: 048

REACTIONS (4)
  - Head discomfort [Not Recovered/Not Resolved]
  - Ischaemia [Not Recovered/Not Resolved]
  - Coronary artery occlusion [Recovered/Resolved]
  - Blood pressure abnormal [Not Recovered/Not Resolved]

NARRATIVE: CASE EVENT DATE: 202003
